FAERS Safety Report 25048756 (Version 1)
Quarter: 2025Q1

REPORT INFORMATION
  Report Type: Spontaneous
  Country: US (occurrence: US)
  Receive Date: 20250307
  Receipt Date: 20250307
  Transmission Date: 20250409
  Serious: No
  Sender: SAMSUNG BIOEPIS
  Company Number: US-SAMSUNG BIOEPIS-SB-2024-09826

PATIENT
  Age: 63 Year
  Sex: Female
  Weight: 117 kg

DRUGS (5)
  1. HADLIMA [Suspect]
     Active Substance: ADALIMUMAB-BWWD
     Indication: Uveitis
     Dosage: 40 MG/0.4 ML
     Route: 058
     Dates: start: 20240202
  2. BENAZEPRIL HYDROCHLORIDE AND HYDROCHLOROTHIAZIDE [Suspect]
     Active Substance: BENAZEPRIL HYDROCHLORIDE\HYDROCHLOROTHIAZIDE
     Indication: Blood pressure abnormal
     Dosage: 5-6.25 MG
     Route: 048
     Dates: start: 20240214
  3. PREDNISONE [Concomitant]
     Active Substance: PREDNISONE
     Indication: Product used for unknown indication
     Route: 048
  4. POTASSIUM [Concomitant]
     Active Substance: POTASSIUM
     Indication: Product used for unknown indication
  5. CELLCEPT [Concomitant]
     Active Substance: MYCOPHENOLATE MOFETIL
     Indication: Product used for unknown indication
     Route: 048

REACTIONS (3)
  - Pollakiuria [Recovered/Resolved]
  - Escherichia urinary tract infection [Unknown]
  - Bladder irritation [Unknown]

NARRATIVE: CASE EVENT DATE: 20240202
